FAERS Safety Report 5391084-5 (Version None)
Quarter: 2007Q3

REPORT INFORMATION
  Report Type: 
  Country: None (occurrence: None)
  Receive Date: 20070719
  Receipt Date: 20070711
  Transmission Date: 20080115
  Serious: Yes (Other)
  Sender: FDA-Public Use
  Company Number: AU-JNJFOC-20070702419

PATIENT
  Sex: Female

DRUGS (11)
  1. MINOCYCLINE HCL [Suspect]
     Route: 048
  2. MINOCYCLINE HCL [Suspect]
     Route: 048
  3. MINOCYCLINE HCL [Suspect]
     Route: 048
  4. MINOCYCLINE HCL [Suspect]
     Indication: DERMATITIS ACNEIFORM
     Route: 048
  5. TETRACYCLINE [Suspect]
     Route: 065
  6. TETRACYCLINE [Suspect]
     Route: 065
  7. TETRACYCLINE [Suspect]
     Indication: DERMATITIS ACNEIFORM
     Route: 065
  8. DOXYCYCLINE [Concomitant]
     Route: 065
  9. ADAPALENE [Concomitant]
     Route: 061
  10. BENZOYL PEROXIDE [Concomitant]
     Route: 061
  11. METRONIDAZOLE [Concomitant]
     Route: 061

REACTIONS (1)
  - OSTEOMA CUTIS [None]
